FAERS Safety Report 23898661 (Version 4)
Quarter: 2024Q4

REPORT INFORMATION
  Report Type: Spontaneous
  Country: JP (occurrence: JP)
  Receive Date: 20240525
  Receipt Date: 20241106
  Transmission Date: 20250115
  Serious: Yes (Death, Life-Threatening, Hospitalization)
  Sender: ROCHE
  Company Number: JP-CHUGAI-2024017059AA

PATIENT
  Age: 80 Year
  Sex: Male
  Weight: 47 kg

DRUGS (8)
  1. TECENTRIQ [Suspect]
     Active Substance: ATEZOLIZUMAB
     Indication: Lung adenocarcinoma
     Dosage: 1200 MILLIGRAM, ONCE/3WEEKS
     Route: 065
     Dates: start: 20240419, end: 20240419
  2. ABRAXANE [Suspect]
     Active Substance: PACLITAXEL
     Indication: Lung adenocarcinoma
     Route: 065
     Dates: start: 20240419, end: 20240502
  3. CARBOPLATIN [Suspect]
     Active Substance: CARBOPLATIN
     Indication: Lung adenocarcinoma
     Route: 065
     Dates: start: 20240419, end: 20240419
  4. CELECOXIB [Concomitant]
     Active Substance: CELECOXIB
  5. CLOPIDOGREL [Concomitant]
     Active Substance: CLOPIDOGREL BISULFATE
  6. SILODOSIN [Concomitant]
     Active Substance: SILODOSIN
  7. ENALAPRIL [Concomitant]
     Active Substance: ENALAPRIL
  8. ESOMEPRAZOLE [Concomitant]
     Active Substance: ESOMEPRAZOLE

REACTIONS (7)
  - Blood lactate dehydrogenase increased [Recovering/Resolving]
  - Hyperuricaemia [Recovering/Resolving]
  - Bacteraemia [Fatal]
  - Febrile neutropenia [Fatal]
  - Tumour lysis syndrome [Recovering/Resolving]
  - White blood cell count decreased [Recovering/Resolving]
  - Lung adenocarcinoma [Fatal]

NARRATIVE: CASE EVENT DATE: 20240422
